FAERS Safety Report 12465019 (Version 1)
Quarter: 2016Q2

REPORT INFORMATION
  Report Type: Spontaneous
  Country: US (occurrence: US)
  Receive Date: 20160614
  Receipt Date: 20160614
  Transmission Date: 20160815
  Serious: No
  Sender: FDA-Public Use
  Company Number: US-B.I. PHARMACEUTICALS,INC./RIDGEFIELD-2016-BI-35165BP

PATIENT
  Sex: Male

DRUGS (3)
  1. TRADJENTA [Suspect]
     Active Substance: LINAGLIPTIN
     Indication: TYPE 2 DIABETES MELLITUS
     Route: 065
     Dates: start: 2016
  2. ALLOPURINAL [Concomitant]
     Indication: GOUT
     Route: 065
  3. COCHICINE [Concomitant]
     Indication: GOUT
     Route: 065

REACTIONS (1)
  - Gastrointestinal haemorrhage [Unknown]
